FAERS Safety Report 8306600-0 (Version None)
Quarter: 2012Q1

REPORT INFORMATION
  Report Type: 
  Country: None (occurrence: None)
  Receive Date: 20120327
  Receipt Date: 20100408
  Transmission Date: 20120608
  Serious: Yes (Other)
  Sender: FDA-Public Use
  Company Number: PHEH2009US16598

PATIENT
  Age: 65 Year
  Sex: Female
  Weight: 64.8 kg

DRUGS (6)
  1. BLOOD CELLS, RED (RED BLOOD CELLS) [Concomitant]
  2. ZYRTEC [Concomitant]
  3. GLEEVEC [Suspect]
     Indication: MASTOCYTOSIS
     Dosage: 200 MG, DAILY, ORAL
     Route: 048
     Dates: start: 20091031
  4. MULTIVITAMINS (ASCORBIC ACID, ERGOCALCIFEROL, FOLIC ACID, NICOTINAMIDE [Concomitant]
  5. VITAMIN D [Concomitant]
  6. LEVOXYL [Concomitant]

REACTIONS (7)
  - OEDEMA [None]
  - ABDOMINAL PAIN [None]
  - DIARRHOEA [None]
  - DIVERTICULITIS [None]
  - HAEMATOCRIT DECREASED [None]
  - PYREXIA [None]
  - FLUID RETENTION [None]
